FAERS Safety Report 7447481-7 (Version None)
Quarter: 2011Q2

REPORT INFORMATION
  Report Type: 
  Country: None (occurrence: None)
  Receive Date: 20110429
  Receipt Date: 20110421
  Transmission Date: 20111010
  Serious: No
  Sender: FDA-Public Use
  Company Number: B0715547A

PATIENT
  Age: 9 Year
  Sex: Female

DRUGS (2)
  1. RELENZA [Suspect]
     Dosage: 20MG PER DAY
     Route: 055
     Dates: start: 20110422
  2. RELENZA [Suspect]
     Indication: INFLUENZA
     Dosage: 40MG PER DAY
     Route: 055
     Dates: start: 20110421, end: 20110421

REACTIONS (2)
  - OVERDOSE [None]
  - NO ADVERSE EVENT [None]
